FAERS Safety Report 6145809-1 (Version None)
Quarter: 2009Q2

REPORT INFORMATION
  Report Type: 
  Country: None (occurrence: None)
  Receive Date: 20090406
  Receipt Date: 20090406
  Transmission Date: 20091009
  Serious: No
  Sender: FDA-Public Use
  Company Number: None

PATIENT
  Age: 63 Year
  Sex: Female
  Weight: 96.6162 kg

DRUGS (14)
  1. XYLOCAINE [Suspect]
     Indication: NAUSEA
  2. XYLOCAINE [Suspect]
     Indication: RASH
  3. XYLOCAINE [Suspect]
     Indication: SWOLLEN TONGUE
  4. XYLOCAINE [Suspect]
     Indication: TRANSIENT ISCHAEMIC ATTACK
  5. XYLOCAINE [Suspect]
     Indication: VOMITING
  6. IVP, PROCAINE [Suspect]
     Indication: RASH
  7. IVP, PROCAINE [Suspect]
     Indication: SWOLLEN TONGUE
  8. IVP, PROCAINE [Suspect]
     Indication: TRANSIENT ISCHAEMIC ATTACK
  9. IVP, SULFA [Suspect]
     Indication: RASH
  10. IVP, SULFA [Suspect]
     Indication: SWOLLEN TONGUE
  11. IVP, BUPROFEN [Suspect]
     Indication: RASH
  12. IVP, BUPROFEN [Suspect]
     Indication: SWOLLEN TONGUE
  13. IVP, GREEN BELL PEPPERS [Suspect]
     Indication: RASH
  14. IVP, GREEN BELL PEPPERS [Suspect]
     Indication: SWOLLEN TONGUE

REACTIONS (6)
  - DRUG ERUPTION [None]
  - HEADACHE [None]
  - HYPOAESTHESIA FACIAL [None]
  - RASH [None]
  - STOMATITIS [None]
  - SWOLLEN TONGUE [None]
